FAERS Safety Report 15899371 (Version 3)
Quarter: 2019Q2

REPORT INFORMATION
  Report Type: Report from Study
  Country: JP (occurrence: JP)
  Receive Date: 20190201
  Receipt Date: 20190620
  Transmission Date: 20190711
  Serious: Yes (Hospitalization)
  Sender: FDA-Public Use
  Company Number: JP-DSJP-DSJ-2019-102675AA

PATIENT

DRUGS (8)
  1. EDOXABAN [Suspect]
     Active Substance: EDOXABAN TOSYLATE
     Indication: ATRIAL FIBRILLATION
     Dosage: 30 MG, QD
     Route: 048
     Dates: start: 20170607, end: 20180120
  2. ASA [Concomitant]
     Active Substance: ASPIRIN
     Indication: PRODUCT USED FOR UNKNOWN INDICATION
  3. ANTIHYPERTENSIVES [Concomitant]
     Active Substance: UNSPECIFIED INGREDIENT
     Indication: PRODUCT USED FOR UNKNOWN INDICATION
  4. EDOXABAN OD [Suspect]
     Active Substance: EDOXABAN TOSYLATE
     Indication: ATRIAL FIBRILLATION
     Dosage: 30 MG, QD
     Route: 048
     Dates: start: 20180121, end: 20180605
  5. EDOXABAN OD [Suspect]
     Active Substance: EDOXABAN TOSYLATE
     Dosage: 30 MG, QD
     Route: 048
     Dates: start: 20180824
  6. ANTIARRHYTHMIC AGENTS [Concomitant]
     Active Substance: UNSPECIFIED INGREDIENT
     Indication: PRODUCT USED FOR UNKNOWN INDICATION
  7. PROTON PUMP INHIBITORS [Concomitant]
     Active Substance: UNSPECIFIED INGREDIENT
     Indication: PRODUCT USED FOR UNKNOWN INDICATION
  8. DIPEPTIDYL PEPTIDASE 4 (DPP-4) INHIBITORS [Concomitant]
     Active Substance: UNSPECIFIED INGREDIENT
     Indication: PRODUCT USED FOR UNKNOWN INDICATION

REACTIONS (28)
  - Colitis ischaemic [Recovering/Resolving]
  - Mechanical ileus [Recovering/Resolving]
  - Dysuria [Recovering/Resolving]
  - Contusion [Recovered/Resolved]
  - Eczema [Not Recovered/Not Resolved]
  - Fall [Recovered/Resolved]
  - Haematochezia [Recovering/Resolving]
  - Fall [Recovered/Resolved]
  - Skin abrasion [Recovered/Resolved]
  - Anger [Not Recovered/Not Resolved]
  - Angina pectoris [Recovering/Resolving]
  - Skin ulcer [Recovered/Resolved]
  - Cognitive disorder [Not Recovered/Not Resolved]
  - Nasopharyngitis [Recovering/Resolving]
  - Epistaxis [Recovered/Resolved]
  - Decubitus ulcer [Recovering/Resolving]
  - Delirium [Recovering/Resolving]
  - Pruritus [Recovering/Resolving]
  - Decubitus ulcer [Not Recovered/Not Resolved]
  - Angina pectoris [Recovering/Resolving]
  - Vertigo positional [Recovering/Resolving]
  - Epistaxis [Recovering/Resolving]
  - Decreased appetite [Recovering/Resolving]
  - Fall [Recovered/Resolved]
  - Anaemia [Not Recovered/Not Resolved]
  - Renal tubular necrosis [Recovering/Resolving]
  - Contusion [Recovered/Resolved]
  - Epistaxis [Recovering/Resolving]

NARRATIVE: CASE EVENT DATE: 20170608
